FAERS Safety Report 25498450 (Version 1)
Quarter: 2025Q3

REPORT INFORMATION
  Report Type: Spontaneous
  Country: EU (occurrence: EU)
  Receive Date: 20250701
  Receipt Date: 20250701
  Transmission Date: 20251020
  Serious: Yes (Hospitalization)
  Sender: SANDOZ
  Company Number: None

PATIENT
  Age: 41 Year
  Sex: Female
  Weight: 75 kg

DRUGS (8)
  1. ASPIRIN [Suspect]
     Active Substance: ASPIRIN
     Indication: Anticoagulant therapy
     Dosage: 100 MG/J
     Route: 048
     Dates: start: 20250130
  2. BOSENTAN [Suspect]
     Active Substance: BOSENTAN
     Indication: Product used for unknown indication
     Dosage: 3500 MG, QD,  350 MG/J
     Route: 048
     Dates: start: 20250129, end: 20250217
  3. CELLCEPT [Suspect]
     Active Substance: MYCOPHENOLATE MOFETIL
     Indication: Product use in unapproved indication
     Dosage: 1500 MG, QD, 1500 MG/J
     Route: 048
     Dates: start: 20250129, end: 20250217
  4. HYDROXYZINE [Suspect]
     Active Substance: HYDROXYZINE HYDROCHLORIDE
     Indication: Depression
     Dosage: 25 MG, QD, 25 MG/J
     Route: 048
     Dates: start: 20250129, end: 20250214
  5. LANSOPRAZOLE [Suspect]
     Active Substance: LANSOPRAZOLE
     Indication: Product used for unknown indication
     Dosage: 60 MG QD, 60 MG/J
     Route: 048
  6. LOVENOX [Suspect]
     Active Substance: ENOXAPARIN SODIUM
     Indication: Thrombosis prophylaxis
     Dosage: 4000 UI/J
     Route: 058
     Dates: start: 20250129
  7. VENLAFAXINE [Suspect]
     Active Substance: VENLAFAXINE HYDROCHLORIDE
     Indication: Depression
     Dosage: 75 MG, QD, 75 MG/J
     Route: 048
     Dates: start: 20250130, end: 20250210
  8. ZOLPIDEM [Suspect]
     Active Substance: ZOLPIDEM TARTRATE
     Indication: Product used for unknown indication
     Dosage: 10 MG/J
     Route: 048
     Dates: start: 20250130

REACTIONS (1)
  - Hepatic cytolysis [Recovering/Resolving]

NARRATIVE: CASE EVENT DATE: 20250207
